FAERS Safety Report 19483981 (Version 2)
Quarter: 2021Q3

REPORT INFORMATION
  Report Type: Spontaneous
  Country: IT (occurrence: IT)
  Receive Date: 20210701
  Receipt Date: 20210709
  Transmission Date: 20211014
  Serious: Yes (Other)
  Sender: FDA-Public Use
  Company Number: IT-MYLANLABS-2021M1038158

PATIENT
  Age: 83 Year
  Sex: Female

DRUGS (3)
  1. QUETIAPINE MYLAN [Suspect]
     Active Substance: QUETIAPINE
     Dosage: 200 MILLIGRAM, QD (50MG MORNING, 50MG LUNCH, 100MG EVENING)
     Route: 048
  2. TALOFEN [Concomitant]
     Active Substance: PROMAZINE HYDROCHLORIDE
     Dosage: 3 DROP, BID (IN THE MORNING AND IN THE EVENING)
  3. QUETIAPINE MYLAN [Suspect]
     Active Substance: QUETIAPINE
     Indication: PRODUCT USED FOR UNKNOWN INDICATION
     Dosage: 100 MILLIGRAM, QD (25 MG 2 TIMES A DAY, 50 MG ONCE A DAY)
     Route: 048

REACTIONS (9)
  - Drug ineffective [Unknown]
  - Delirium [Unknown]
  - Psychomotor hyperactivity [Unknown]
  - Circumstance or information capable of leading to medication error [Unknown]
  - Catatonia [Unknown]
  - Somnolence [Unknown]
  - Aggression [Unknown]
  - Apathy [Unknown]
  - Agitation [Unknown]
